FAERS Safety Report 8415268-4 (Version None)
Quarter: 2012Q2

REPORT INFORMATION
  Report Type: 
  Country: None (occurrence: None)
  Receive Date: 20120606
  Receipt Date: 20120501
  Transmission Date: 20120825
  Serious: No
  Sender: FDA-Public Use
  Company Number: US-PFIZER INC-2012092702

PATIENT
  Sex: Male
  Weight: 79.365 kg

DRUGS (5)
  1. METOPROLOL SUCCINATE [Concomitant]
     Dosage: 25 MG, 1 TAB DAILY
  2. LIPITOR [Suspect]
     Indication: LOW DENSITY LIPOPROTEIN INCREASED
     Dosage: 80 MG, 1,1X/DAY
     Route: 048
     Dates: start: 20120311
  3. PLAVIX [Concomitant]
     Dosage: 75 MG, 1 CAP DAILY
  4. NITROGLYCERIN [Concomitant]
     Dosage: 1/150 PRN
  5. ACETYLSALICYLIC ACID [Concomitant]
     Dosage: 325 MG, 1 TAB DAILY

REACTIONS (1)
  - NO ADVERSE EVENT [None]
